FAERS Safety Report 6283350-6 (Version None)
Quarter: 2009Q3

REPORT INFORMATION
  Report Type: 
  Country: None (occurrence: None)
  Receive Date: 20090721
  Receipt Date: 20090721
  Transmission Date: 20100115
  Serious: No
  Sender: FDA-Public Use
  Company Number: None

PATIENT
  Age: 32 Year
  Sex: Female
  Weight: 98.4 kg

DRUGS (3)
  1. OXYTOCIN IN LACTATED RINGERS 10 UNITS/1000 ML AMERIDOSE -HOSPIRA IV FL [Suspect]
     Indication: CAESAREAN SECTION
     Dosage: CONTINUOUS N.A. IV DRIP MINUTES/PER OR REPORT
     Route: 041
     Dates: start: 20090716, end: 20090716
  2. ANESTHESIA [Concomitant]
  3. PROPYLACTIC ANTIBIOTIC [Concomitant]

REACTIONS (4)
  - ANAPHYLACTIC REACTION [None]
  - FLUSHING [None]
  - HYPOTENSION [None]
  - NAUSEA [None]
